FAERS Safety Report 20312328 (Version 1)
Quarter: 2022Q1

REPORT INFORMATION
  Report Type: Spontaneous
  Country: US (occurrence: None)
  Receive Date: 20220107
  Receipt Date: 20220107
  Transmission Date: 20220423
  Serious: Yes (Death)
  Sender: FDA-Public Use
  Company Number: None

PATIENT
  Age: 74 Year
  Sex: Male
  Weight: 112 kg

DRUGS (1)
  1. TOCILIZUMAB [Suspect]
     Active Substance: TOCILIZUMAB
     Indication: COVID-19
     Dosage: 800 MG  BID IV?
     Route: 042
     Dates: start: 20211231, end: 20220101

REACTIONS (4)
  - Staphylococcal bacteraemia [None]
  - Staphylococcus test positive [None]
  - Acute kidney injury [None]
  - Atrial fibrillation [None]

NARRATIVE: CASE EVENT DATE: 20220106
